FAERS Safety Report 24095751 (Version 1)
Quarter: 2024Q3

REPORT INFORMATION
  Report Type: Spontaneous
  Country: CN (occurrence: CN)
  Receive Date: 20240716
  Receipt Date: 20240716
  Transmission Date: 20241016
  Serious: Yes (Disabling)
  Sender: PFIZER
  Company Number: CN-PFIZER INC-PV202400091515

PATIENT
  Age: 73 Year
  Sex: Female
  Weight: 60 kg

DRUGS (8)
  1. ZYVOX [Suspect]
     Active Substance: LINEZOLID
     Indication: Cerebral haemorrhage
     Dosage: 300 ML, 3X/DAY
     Route: 041
     Dates: start: 20190526, end: 20190530
  2. ZYVOX [Suspect]
     Active Substance: LINEZOLID
     Indication: Anti-infective therapy
  3. OMEPRAZOLE SODIUM [Suspect]
     Active Substance: OMEPRAZOLE SODIUM
     Indication: Cerebral haemorrhage
     Dosage: 40 MG, 2X/DAY
     Route: 041
     Dates: start: 20190523, end: 20190530
  4. OMEPRAZOLE SODIUM [Suspect]
     Active Substance: OMEPRAZOLE SODIUM
     Indication: Prophylaxis
  5. MEROPENEM [Suspect]
     Active Substance: MEROPENEM
     Indication: Cerebral haemorrhage
     Dosage: 1 G, 3X/DAY
     Route: 041
     Dates: start: 20190526, end: 20190530
  6. MEROPENEM [Suspect]
     Active Substance: MEROPENEM
     Indication: Anti-infective therapy
  7. ROCEPHIN [Concomitant]
     Active Substance: CEFTRIAXONE SODIUM
     Indication: Cerebral haemorrhage
     Dosage: 2 G, 1X/DAY
     Route: 041
     Dates: start: 20190523, end: 20190526
  8. ROCEPHIN [Concomitant]
     Active Substance: CEFTRIAXONE SODIUM
     Indication: Anti-infective therapy
     Dosage: 2 G, 1X/DAY
     Dates: start: 20190530

REACTIONS (7)
  - Hepatic function abnormal [Recovering/Resolving]
  - Alanine aminotransferase increased [Recovering/Resolving]
  - Aspartate aminotransferase increased [Recovering/Resolving]
  - Blood albumin decreased [Recovering/Resolving]
  - Gamma-glutamyltransferase increased [Recovering/Resolving]
  - Protein total decreased [Recovering/Resolving]
  - Off label use [Unknown]

NARRATIVE: CASE EVENT DATE: 20190526
